FAERS Safety Report 5147409-9 (Version None)
Quarter: 2006Q4

REPORT INFORMATION
  Report Type: 
  Country: None (occurrence: None)
  Receive Date: 20061103
  Receipt Date: 20061026
  Transmission Date: 20070319
  Serious: Yes (Life-Threatening, Hospitalization, Other)
  Sender: FDA-Public Use
  Company Number: HQWYE686127OCT06

PATIENT
  Age: 59 Year
  Sex: Female

DRUGS (20)
  1. PROTONIX [Suspect]
     Indication: GASTROOESOPHAGEAL REFLUX DISEASE
     Dosage: 40 MG 1X PER 1 DAY; ORAL
     Route: 048
     Dates: start: 20060803, end: 20060805
  2. CELEBREX [Concomitant]
  3. VALIUM [Concomitant]
  4. PHENERGAN (PROMETHAZINE HYDROCHLORIDE) [Concomitant]
  5. MS CONTIN [Concomitant]
  6. LEXAPRO [Concomitant]
  7. SEPTRA [Concomitant]
  8. DEPAKOTE [Concomitant]
  9. DILAUDID [Concomitant]
  10. PREMARIN [Concomitant]
  11. HYDROCHLOROTHIAZIDE [Concomitant]
  12. PREDNISONE TAB [Concomitant]
  13. LEVOXYL [Concomitant]
  14. CELEXA [Concomitant]
  15. GLYCERYL TRINITRATE [Concomitant]
  16. NYSTATIN [Concomitant]
  17. ALBUTEROL [Concomitant]
  18. PAXIL [Concomitant]
  19. COUMADIN [Concomitant]
  20. BETOPIC (BETAMETHASONE) [Concomitant]

REACTIONS (11)
  - ANAPHYLACTIC SHOCK [None]
  - BLISTER [None]
  - BLOOD POTASSIUM DECREASED [None]
  - CELLULITIS [None]
  - DYSPNOEA [None]
  - GENERALISED OEDEMA [None]
  - PAIN [None]
  - SKIN EXFOLIATION [None]
  - STAPHYLOCOCCAL INFECTION [None]
  - URINARY RETENTION [None]
  - WEIGHT BEARING DIFFICULTY [None]
